FAERS Safety Report 5313716-X (Version None)
Quarter: 2007Q1

REPORT INFORMATION
  Report Type: 
  Country: None (occurrence: None)
  Receive Date: 20070130
  Receipt Date: 20060302
  Transmission Date: 20070707
  Serious: Yes (Other)
  Sender: FDA-Public Use
  Company Number: 144788USA

PATIENT
  Age: 62 Year
  Sex: Female

DRUGS (4)
  1. COPAXONE [Suspect]
     Indication: MULTIPLE SCLEROSIS
     Dosage: (20 MG), SUBCUTANEOUS
     Route: 058
     Dates: start: 20030101
  2. CHLORDIAZEPATE DIPOTASSIUM [Concomitant]
  3. LEXAPRO [Concomitant]
  4. CARBATROL [Concomitant]

REACTIONS (1)
  - OESOPHAGITIS [None]
